FAERS Safety Report 9439978 (Version 1)
Quarter: 2013Q3

REPORT INFORMATION
  Report Type: Spontaneous
  Country: US (occurrence: US)
  Receive Date: 20130805
  Receipt Date: 20130805
  Transmission Date: 20140515
  Serious: Yes (Other)
  Sender: FDA-Public Use
  Company Number: US-BAYER-2013-091768

PATIENT
  Age: 58 Year
  Sex: Female
  Weight: 63 kg

DRUGS (7)
  1. ALEVE CAPLET [Suspect]
     Dosage: UNK
  2. BAYER GENUINE ASPIRIN ORIGINAL STRENGTH [Suspect]
     Dosage: UNK
  3. PROTONIX [Suspect]
     Indication: PEPTIC ULCER
     Dosage: UNK
  4. PROTONIX [Suspect]
     Indication: GASTRIC HAEMORRHAGE
  5. ADVIL [Suspect]
     Dosage: UNK
  6. PRILOSEC [Suspect]
     Indication: PEPTIC ULCER
  7. PRILOSEC [Suspect]
     Indication: GASTRIC HAEMORRHAGE

REACTIONS (3)
  - Gastric ulcer [Unknown]
  - Gastric disorder [Unknown]
  - Drug ineffective [None]
